FAERS Safety Report 23160627 (Version 1)
Quarter: 2023Q4

REPORT INFORMATION
  Report Type: Spontaneous
  Country: JP (occurrence: JP)
  Receive Date: 20231108
  Receipt Date: 20231108
  Transmission Date: 20240110
  Serious: No
  Sender: FDA-Public Use
  Company Number: JP-GSKNCCC-Case-01846432_AE-76918

PATIENT

DRUGS (1)
  1. SOTROVIMAB [Suspect]
     Active Substance: SOTROVIMAB
     Indication: Coronavirus infection
     Dosage: 250 MG
     Dates: start: 20230706

REACTIONS (2)
  - Intentional underdose [Unknown]
  - Off label use [Unknown]
